FAERS Safety Report 12662668 (Version 5)
Quarter: 2017Q1

REPORT INFORMATION
  Report Type: Spontaneous
  Country: FR (occurrence: FR)
  Receive Date: 20160818
  Receipt Date: 20170330
  Transmission Date: 20170428
  Serious: Yes (Hospitalization)
  Sender: FDA-Public Use
  Company Number: FR-ASTRAZENECA-2016SE87406

PATIENT
  Age: 53 Year
  Sex: Female

DRUGS (16)
  1. PIPERACILLINE TAZOBACTAM MYLAN [Suspect]
     Active Substance: PIPERACILLIN SODIUM\TAZOBACTAM SODIUM
     Indication: PERIHEPATIC ABSCESS
     Route: 042
     Dates: start: 20160618, end: 20160715
  2. SKENAN [Suspect]
     Active Substance: MORPHINE SULFATE
     Indication: ANALGESIC THERAPY
     Dosage: 40 MG SR, DAILY
     Route: 048
     Dates: start: 20160617, end: 20160723
  3. PRIMPERAN [Concomitant]
     Active Substance: METOCLOPRAMIDE HYDROCHLORIDE
     Route: 065
  4. INEXIUM [Suspect]
     Active Substance: ESOMEPRAZOLE
     Route: 048
     Dates: start: 20160617, end: 20160719
  5. HYDROXYZINE [Suspect]
     Active Substance: HYDROXYZINE HYDROCHLORIDE
     Indication: ANXIETY
     Dosage: 25.0MG ONCE/SINGLE ADMINISTRATION
     Route: 048
     Dates: start: 20160618, end: 20160618
  6. IMOVANE [Suspect]
     Active Substance: ZOPICLONE
     Route: 048
     Dates: start: 20160617, end: 20160719
  7. ACTISKENAN [Concomitant]
     Active Substance: MORPHINE SULFATE
     Route: 065
  8. VANCOMYCIN [Suspect]
     Active Substance: VANCOMYCIN
     Indication: PERIHEPATIC ABSCESS
     Dosage: MYLAN (NON AZ PRODUCT), 2500 MG, DAILY
     Route: 042
     Dates: start: 20160617, end: 20160718
  9. FLAGYL [Suspect]
     Active Substance: METRONIDAZOLE\METRONIDAZOLE HYDROCHLORIDE
     Indication: PERIHEPATIC ABSCESS
     Route: 042
     Dates: start: 20160625, end: 20160710
  10. PARACETAMOL [Suspect]
     Active Substance: ACETAMINOPHEN
     Indication: ANALGESIC THERAPY
     Dosage: 1.0G AS REQUIRED
     Route: 042
     Dates: start: 20160618, end: 20160704
  11. LOVENOX [Suspect]
     Active Substance: ENOXAPARIN SODIUM
     Indication: THROMBOSIS PROPHYLAXIS
     Route: 058
     Dates: start: 20160621, end: 20160715
  12. IOMERON [Suspect]
     Active Substance: IOMEPROL
     Indication: COMPUTERISED TOMOGRAM
     Dosage: UNKNOWN
     Route: 042
     Dates: start: 20161121
  13. IOMERON [Suspect]
     Active Substance: IOMEPROL
     Indication: COMPUTERISED TOMOGRAM
     Dosage: 400.0MG UNKNOWN
     Route: 042
     Dates: start: 20160629, end: 20160629
  14. ALPRAZOLAM. [Suspect]
     Active Substance: ALPRAZOLAM
     Indication: ANXIETY
     Route: 048
     Dates: start: 20160618, end: 20160618
  15. MOVICOL [Concomitant]
     Active Substance: POLYETHYLENE GLYCOL 3350\POTASSIUM CHLORIDE\SODIUM BICARBONATE\SODIUM CHLORIDE
     Route: 065
  16. SOMATULINE [Suspect]
     Active Substance: LANREOTIDE ACETATE
     Route: 030
     Dates: start: 20160629, end: 20160629

REACTIONS (3)
  - Liver abscess [Unknown]
  - Drug reaction with eosinophilia and systemic symptoms [Recovered/Resolved]
  - Toxic skin eruption [Unknown]

NARRATIVE: CASE EVENT DATE: 20160707
